FAERS Safety Report 21182009 (Version 1)
Quarter: 2022Q3

REPORT INFORMATION
  Report Type: Spontaneous
  Country: US (occurrence: US)
  Receive Date: 20220807
  Receipt Date: 20220807
  Transmission Date: 20221027
  Serious: Yes (Other)
  Sender: FDA-Public Use
  Company Number: US-GALDERMA-US2022010659

PATIENT

DRUGS (1)
  1. DOXYCYCLINE [Suspect]
     Active Substance: DOXYCYCLINE
     Indication: Antibiotic prophylaxis
     Dosage: UNK
     Route: 065

REACTIONS (3)
  - Cholangitis sclerosing [Unknown]
  - Colitis ulcerative [Unknown]
  - Intentional product use issue [Recovered/Resolved]
